FAERS Safety Report 12861260 (Version 1)
Quarter: 2016Q4

REPORT INFORMATION
  Report Type: Spontaneous
  Country: US (occurrence: US)
  Receive Date: 20161019
  Receipt Date: 20161019
  Transmission Date: 20170207
  Serious: No
  Sender: FDA-Public Use
  Company Number: US-TEVA-696864ACC

PATIENT
  Age: 29 Year
  Sex: Female
  Weight: 65.83 kg

DRUGS (1)
  1. AFTERA [Suspect]
     Active Substance: LEVONORGESTREL
     Dates: start: 20160919, end: 20160919

REACTIONS (8)
  - Abdominal pain [Unknown]
  - Tinnitus [Unknown]
  - Fatigue [Not Recovered/Not Resolved]
  - Breast tenderness [Unknown]
  - Adnexa uteri pain [Unknown]
  - Vulvovaginal pain [Unknown]
  - Back pain [Unknown]
  - Dry mouth [Unknown]

NARRATIVE: CASE EVENT DATE: 20160920
